FAERS Safety Report 16018641 (Version 1)
Quarter: 2019Q1

REPORT INFORMATION
  Report Type: Spontaneous
  Country: US (occurrence: US)
  Receive Date: 20190201
  Receipt Date: 20190201
  Transmission Date: 20190418
  Serious: No
  Sender: FDA-Public Use
  Company Number: None

PATIENT
  Sex: Female

DRUGS (2)
  1. LEVOTHYROXINE 50MCG [Suspect]
     Active Substance: LEVOTHYROXINE
     Route: 048
  2. LEVOTHYROXINE 175MCG [Suspect]
     Active Substance: LEVOTHYROXINE
     Indication: DIABETIC EYE DISEASE
     Route: 048

REACTIONS (2)
  - Product substitution issue [None]
  - Drug ineffective [None]
